FAERS Safety Report 8392507 (Version 2)
Quarter: 2012Q4

REPORT INFORMATION
  Report Type: 
  Country: US (occurrence: US)
  Receive Date: 20120206
  Receipt Date: 20121123
  Transmission Date: 20130627
  Serious: Yes (Other)
  Sender: FDA-Public Use
  Company Number: US-ROCHE-786692

PATIENT
  Sex: Female
  Weight: 102.15 kg

DRUGS (2)
  1. ACCUTANE [Suspect]
     Indication: ACNE
     Route: 065
     Dates: start: 1999, end: 2003
  2. ACCUTANE [Suspect]
     Route: 065
     Dates: start: 2000, end: 2008

REACTIONS (9)
  - Colitis ulcerative [Unknown]
  - Oesophagitis [Unknown]
  - Gastritis [Unknown]
  - Depression [Unknown]
  - Inflammatory bowel disease [Unknown]
  - Suicidal ideation [Unknown]
  - Irritable bowel syndrome [Unknown]
  - Headache [Unknown]
  - Vision blurred [Unknown]
